FAERS Safety Report 9693796 (Version 2)
Quarter: 2013Q4

REPORT INFORMATION
  Report Type: Spontaneous
  Country: US (occurrence: US)
  Receive Date: 20131118
  Receipt Date: 20131206
  Transmission Date: 20140711
  Serious: Yes (Other)
  Sender: FDA-Public Use
  Company Number: US-PFIZER INC-2013326184

PATIENT
  Age: 74 Year
  Sex: Female
  Weight: 86.2 kg

DRUGS (10)
  1. CELEBREX [Suspect]
     Indication: ARTHRITIS
     Dosage: 200 MG, 1X/DAY
     Route: 048
     Dates: start: 20120417
  2. CELEBREX [Suspect]
     Indication: BACK PAIN
  3. ESCITALOPRAM [Concomitant]
     Dosage: UNK
  4. NEXIUM [Concomitant]
     Dosage: 40 MG, 1X/DAY (QD)
  5. ACTONEL [Concomitant]
     Dosage: 150 MG, MONTHLY
  6. COUMADIN [Concomitant]
     Indication: ANTICOAGULANT THERAPY
     Dosage: UNK
  7. DILTIAZEM [Concomitant]
     Dosage: 180 MG, 1X/DAY (ONE QD)
  8. ARICEPT [Concomitant]
     Dosage: 23 MG, 1X/DAY (ONE QD)
  9. LEXAPRO [Concomitant]
     Dosage: 20 MG, 1X/DAY (ONE QD)
  10. MECLIZINE [Concomitant]
     Dosage: 25 MG, AS NEEDED (ONE Q 6 HRS PRN)

REACTIONS (6)
  - Drug dose omission [Unknown]
  - Dementia Alzheimer^s type [Not Recovered/Not Resolved]
  - Dementia [Not Recovered/Not Resolved]
  - Tremor [Recovering/Resolving]
  - Blood disorder [Unknown]
  - Dizziness [Recovering/Resolving]
